FAERS Safety Report 5982202-6 (Version None)
Quarter: 2008Q4

REPORT INFORMATION
  Report Type: 
  Country: None (occurrence: None)
  Receive Date: 20081208
  Receipt Date: 20081202
  Transmission Date: 20090506
  Serious: Yes (Other)
  Sender: FDA-Public Use
  Company Number: IT-JNJFOC-20081200456

PATIENT
  Sex: Male

DRUGS (5)
  1. LEVOFLOXACIN [Suspect]
     Indication: PANCREATITIS
     Route: 048
  2. POTASSIUM CHLORIDE [Concomitant]
     Route: 065
  3. ALLOPURINOL [Concomitant]
     Route: 065
  4. INSULIN [Concomitant]
     Route: 065
  5. PANCREX [Concomitant]
     Route: 065

REACTIONS (1)
  - EXTRAPYRAMIDAL DISORDER [None]
